FAERS Safety Report 14715470 (Version 1)
Quarter: 2018Q2

REPORT INFORMATION
  Report Type: Spontaneous
  Country: JP (occurrence: JP)
  Receive Date: 20180404
  Receipt Date: 20180404
  Transmission Date: 20180711
  Serious: Yes (Other)
  Sender: FDA-Public Use
  Company Number: JP-ASTRAZENECA-2018SE20916

PATIENT
  Age: 16055 Day
  Sex: Female

DRUGS (5)
  1. DENOSUMAB [Suspect]
     Active Substance: DENOSUMAB
     Indication: OSTEOPOROSIS
     Dosage: DAILY UNKNOWN
     Route: 058
     Dates: start: 20171021
  2. TOKISHAKUYAKUSAN [Concomitant]
     Active Substance: HERBALS
     Dosage: DOSE UNKNOWN
     Route: 048
  3. NEXIUM [Suspect]
     Active Substance: ESOMEPRAZOLE MAGNESIUM
     Indication: GASTRITIS
     Route: 048
  4. DENOSUMAB [Suspect]
     Active Substance: DENOSUMAB
     Indication: OSTEOPOROSIS
     Dosage: NUMBER OF SEPARATE DOSAGES UNKNOWN60.0MG UNKNOWN
     Route: 058
     Dates: start: 20151017, end: 20171021
  5. DENOTAS [Concomitant]
     Active Substance: CALCIUM CARBONATE\CHOLECALCIFEROL\MAGNESIUM CARBONATE
     Indication: OSTEOPOROSIS
     Dosage: DOSE UNKNOWN
     Route: 048

REACTIONS (2)
  - Stillbirth [Unknown]
  - Exposure during pregnancy [Unknown]

NARRATIVE: CASE EVENT DATE: 20180227
